FAERS Safety Report 18856974 (Version 1)
Quarter: 2021Q1

REPORT INFORMATION
  Report Type: Spontaneous
  Country: US (occurrence: US)
  Receive Date: 20210208
  Receipt Date: 20210208
  Transmission Date: 20210420
  Serious: No
  Sender: FDA-Public Use
  Company Number: US-AMGEN-USASP2021017524

PATIENT
  Age: 68 Year
  Sex: Female

DRUGS (2)
  1. PROLIA [Suspect]
     Active Substance: DENOSUMAB
     Indication: OSTEOPOROSIS POSTMENOPAUSAL
  2. PROLIA [Suspect]
     Active Substance: DENOSUMAB
     Indication: LUMBAR VERTEBRAL FRACTURE
     Dosage: 60 MILLIGRAM
     Route: 065

REACTIONS (7)
  - Gingival swelling [Unknown]
  - Musculoskeletal disorder [Unknown]
  - Off label use [Unknown]
  - Palpitations [Unknown]
  - Gait disturbance [Unknown]
  - Gastrooesophageal reflux disease [Unknown]
  - Breast pain [Unknown]
